FAERS Safety Report 5370122-X (Version None)
Quarter: 2007Q2

REPORT INFORMATION
  Report Type: 
  Country: None (occurrence: None)
  Receive Date: 20070626
  Receipt Date: 20070611
  Transmission Date: 20071010
  Serious: Yes (Hospitalization)
  Sender: FDA-Public Use
  Company Number: US-ELI_LILLY_AND_COMPANY-US200706004573

PATIENT
  Age: 43 Year
  Sex: Female

DRUGS (6)
  1. EXENATIDE [Suspect]
     Indication: DIABETES MELLITUS
     Dosage: 10 UG, 2/D
     Route: 058
  2. LEVOTHYROXINE SODIUM [Concomitant]
     Dosage: 25 UG, DAILY (1/D)
     Route: 001
  3. DDAVP (NEEDS NO REFRIGERATION) [Concomitant]
     Dosage: 0.1 MG, 3/D
     Route: 048
  4. PREDNISONE TAB [Concomitant]
     Dosage: 5 MG, EACH MORNING
     Route: 048
  5. PREDNISONE TAB [Concomitant]
     Dosage: 2.5 MG, EACH EVENING
     Route: 048
  6. INSULIN GLARGINE [Concomitant]
     Indication: DIABETES MELLITUS
     Dosage: 25 U, EACH MORNING
     Route: 058

REACTIONS (8)
  - ANOREXIA [None]
  - BRAIN MASS [None]
  - BRAIN SCAN ABNORMAL [None]
  - COMPUTERISED TOMOGRAM [None]
  - HYPERGLYCAEMIA [None]
  - HYPERNATRAEMIA [None]
  - MENTAL IMPAIRMENT [None]
  - MENTAL STATUS CHANGES [None]
